FAERS Safety Report 4677001-1 (Version None)
Quarter: 2005Q2

REPORT INFORMATION
  Report Type: 
  Country: None (occurrence: None)
  Receive Date: 20050526
  Receipt Date: 20050511
  Transmission Date: 20051028
  Serious: Yes (Other)
  Sender: FDA-Public Use
  Company Number: US134528

PATIENT

DRUGS (2)
  1. ENBREL [Suspect]
     Indication: AMYLOIDOSIS
     Dosage: 25 MG, 2 IN 1 WEEKS, SC
     Route: 058
  2. ENBREL [Suspect]
     Indication: ARTHRITIS
     Dosage: 25 MG, 2 IN 1 WEEKS, SC
     Route: 058

REACTIONS (1)
  - ACUTE ENDOCARDITIS [None]
